APPROVED DRUG PRODUCT: TRILYTE
Active Ingredient: POLYETHYLENE GLYCOL 3350; POTASSIUM CHLORIDE; SODIUM BICARBONATE; SODIUM CHLORIDE
Strength: 420GM/BOT;1.48GM/BOT;5.72GM/BOT;11.2GM/BOT
Dosage Form/Route: FOR SOLUTION;ORAL
Application: A076491 | Product #001
Applicant: AUROBINDO PHARMA USA INC
Approved: Feb 5, 2004 | RLD: No | RS: No | Type: DISCN